FAERS Safety Report 4356589-4 (Version None)
Quarter: 2004Q2

REPORT INFORMATION
  Report Type: 
  Country: None (occurrence: None)
  Receive Date: 20040507
  Receipt Date: 20040503
  Transmission Date: 20050107
  Serious: Yes (Hospitalization)
  Sender: FDA-Public Use
  Company Number: STA-AE-04-MTX-182

PATIENT
  Age: 53 Year
  Sex: Female

DRUGS (4)
  1. RHEUMATREX [Suspect]
     Indication: RHEUMATOID ARTHRITIS
     Dosage: 2 MG 1 X PER 1 DAY, ORAL
     Route: 048
     Dates: start: 20040101
  2. PREDONINE (PREDNISOLOLONE) [Concomitant]
  3. VOLTAREN [Concomitant]
  4. WARFARIN SODIUM [Concomitant]

REACTIONS (6)
  - ACCIDENTAL OVERDOSE [None]
  - BONE MARROW DEPRESSION [None]
  - DRUG LEVEL DECREASED [None]
  - LIVER DISORDER [None]
  - PNEUMONIA HAEMOPHILUS [None]
  - STOMATITIS [None]
